FAERS Safety Report 11973159 (Version 2)
Quarter: 2016Q1

REPORT INFORMATION
  Report Type: Spontaneous
  Country: JP (occurrence: JP)
  Receive Date: 20160128
  Receipt Date: 20160210
  Transmission Date: 20160526
  Serious: Yes (Death, Hospitalization, Other)
  Sender: FDA-Public Use
  Company Number: JP-GILEAD-2016-0194096

PATIENT
  Age: 74 Year
  Sex: Female

DRUGS (17)
  1. MEMARY [Concomitant]
     Active Substance: MEMANTINE HYDROCHLORIDE
     Dosage: 1 DF, UNK
     Route: 048
     Dates: start: 20151218, end: 20151224
  2. LUNESTA [Concomitant]
     Active Substance: ESZOPICLONE
     Dosage: 9 DF, UNK
     Route: 048
     Dates: start: 20151215, end: 20151224
  3. VALACICLOVIR [Concomitant]
     Active Substance: VALACYCLOVIR HYDROCHLORIDE
     Dosage: 6 DF, UNK
     Route: 048
     Dates: start: 20151215, end: 20151215
  4. COPEGUS [Concomitant]
     Active Substance: RIBAVIRIN
     Dosage: UNK
     Route: 048
     Dates: start: 20151210, end: 20160106
  5. LIMAPROST ALFADEX [Concomitant]
     Active Substance: LIMAPROST
     Dosage: 3 DF, UNK
     Route: 048
     Dates: start: 20151215, end: 20151215
  6. VITAMINS NOS [Concomitant]
     Active Substance: VITAMINS
     Dosage: 3 DF, UNK
     Route: 048
     Dates: start: 20151218
  7. REFLEX                             /00021218/ [Concomitant]
     Active Substance: PICOLAMINE SALICYLATE
     Dosage: 8 DF, UNK
     Route: 048
     Dates: start: 20151215, end: 20151224
  8. SOVALDI [Suspect]
     Active Substance: SOFOSBUVIR
     Indication: CHRONIC HEPATITIS C
     Dosage: 400 MG, UNK
     Route: 048
     Dates: start: 20151015, end: 20160106
  9. EDIROL [Concomitant]
     Active Substance: ELDECALCITOL
     Dosage: 1 DF, UNK
     Route: 048
  10. NEW LECICARBON [Concomitant]
     Active Substance: SODIUM BICARBONATE\SODIUM PHOSPHATE, MONOBASIC
     Dosage: 1 DF, UNK
     Route: 054
     Dates: start: 20151217, end: 20151217
  11. EPENARD [Concomitant]
     Dosage: 3 DF, UNK
     Route: 048
     Dates: start: 20151215, end: 20151215
  12. COPEGUS [Concomitant]
     Active Substance: RIBAVIRIN
     Indication: CHRONIC HEPATITIS C
     Dosage: 2 DF, UNK
     Route: 048
     Dates: start: 20151015, end: 20151209
  13. COPEGUS [Concomitant]
     Active Substance: RIBAVIRIN
     Dosage: UNK
     Route: 048
     Dates: start: 20151210, end: 20160106
  14. MAGLAX [Concomitant]
     Active Substance: MAGNESIUM OXIDE
     Dosage: 3 DF, UNK
     Route: 048
  15. ADJUST-A [Concomitant]
     Active Substance: SENNA LEAF\SENNOSIDES\SENNOSIDES A AND B
     Dosage: 2 DF, UNK
     Route: 048
     Dates: start: 20151217, end: 20151217
  16. MEMARY [Concomitant]
     Active Substance: MEMANTINE HYDROCHLORIDE
     Dosage: 1 DF, UNK
     Route: 048
     Dates: start: 20151215, end: 20151215
  17. MYONAL                             /00287502/ [Concomitant]
     Active Substance: EPERISONE HYDROCHLORIDE
     Dosage: 3 DF, UNK
     Route: 048

REACTIONS (7)
  - Drowning [Fatal]
  - Herpes zoster [Recovering/Resolving]
  - White blood cell count decreased [Not Recovered/Not Resolved]
  - Post herpetic neuralgia [Not Recovered/Not Resolved]
  - Haemoglobin decreased [Not Recovered/Not Resolved]
  - Rash [Recovered/Resolved]
  - Pain [Not Recovered/Not Resolved]

NARRATIVE: CASE EVENT DATE: 201512
